FAERS Safety Report 9891407 (Version 1)
Quarter: 2014Q1

REPORT INFORMATION
  Report Type: Spontaneous
  Country: US (occurrence: None)
  Receive Date: 20140210
  Receipt Date: 20140210
  Transmission Date: 20141002
  Serious: Yes (Death)
  Sender: FDA-Public Use
  Company Number: 2014010081

PATIENT
  Age: 53 Year
  Sex: Male

DRUGS (4)
  1. ZOLPIDEM (ZOLPIDEM) [Suspect]
  2. TRAMADOL (TRAMADOL) [Suspect]
  3. OPIOID [Suspect]
  4. MARIJUANA [Suspect]

REACTIONS (3)
  - Exposure via ingestion [None]
  - Wrong drug administered [None]
  - Toxicity to various agents [None]
